FAERS Safety Report 4760427-5 (Version None)
Quarter: 2005Q3

REPORT INFORMATION
  Report Type: 
  Country: None (occurrence: None)
  Receive Date: 20050902
  Receipt Date: 20050823
  Transmission Date: 20060218
  Serious: Yes (Hospitalization)
  Sender: FDA-Public Use
  Company Number: JP-MERCK-0508USA04523

PATIENT

DRUGS (3)
  1. PEPCID [Suspect]
     Route: 048
  2. HORIZON [Suspect]
     Route: 048
  3. CHLORPROMAZINE [Suspect]
     Route: 048

REACTIONS (1)
  - LIVER DISORDER [None]
